FAERS Safety Report 4322198-6 (Version None)
Quarter: 2004Q1

REPORT INFORMATION
  Report Type: 
  Country: None (occurrence: None)
  Receive Date: 20040319
  Receipt Date: 20040310
  Transmission Date: 20041129
  Serious: Yes (Hospitalization)
  Sender: FDA-Public Use
  Company Number: 2004AP01255

PATIENT
  Age: 74 Year
  Sex: Male

DRUGS (12)
  1. IRESSA [Suspect]
     Indication: ADENOCARCINOMA
     Dosage: 250 MG DAILY PO
     Route: 048
     Dates: start: 20031127, end: 20040101
  2. IRESSA [Suspect]
     Indication: NON-SMALL CELL LUNG CANCER
     Dosage: 250 MG DAILY PO
     Route: 048
     Dates: start: 20031127, end: 20040101
  3. BIOFERMIN [Concomitant]
  4. BISOLVON [Concomitant]
  5. GRAMALIL [Concomitant]
  6. ADONA [Concomitant]
  7. TRANSAMIN [Concomitant]
  8. HARNAL [Concomitant]
  9. MEDICON [Concomitant]
  10. ARICEPT [Concomitant]
  11. JUVELA [Concomitant]
  12. MEVALOTIN [Concomitant]

REACTIONS (5)
  - ALANINE AMINOTRANSFERASE INCREASED [None]
  - ASPARTATE AMINOTRANSFERASE INCREASED [None]
  - BLOOD LACTATE DEHYDROGENASE INCREASED [None]
  - GAMMA-GLUTAMYLTRANSFERASE INCREASED [None]
  - LIVER DISORDER [None]
